FAERS Safety Report 9355494 (Version 2)
Quarter: 2013Q3

REPORT INFORMATION
  Report Type: Spontaneous
  Country: JP (occurrence: JP)
  Receive Date: 20130619
  Receipt Date: 20130911
  Transmission Date: 20140515
  Serious: Yes (Other)
  Sender: FDA-Public Use
  Company Number: JP-PFIZER INC-2013182252

PATIENT
  Age: 9 Decade
  Sex: Male

DRUGS (2)
  1. CELECOX [Suspect]
     Indication: ANALGESIC THERAPY
     Dosage: 100 MG, 2X/DAY
     Route: 048
  2. RIMATIL [Concomitant]
     Dosage: UNK

REACTIONS (3)
  - Bradycardia [Recovered/Resolved]
  - Cardiac failure [Recovered/Resolved]
  - Intentional drug misuse [Unknown]
